FAERS Safety Report 10253633 (Version 1)
Quarter: 2014Q2

REPORT INFORMATION
  Report Type: Spontaneous
  Country: US (occurrence: US)
  Receive Date: 20140623
  Receipt Date: 20140623
  Transmission Date: 20141212
  Serious: Yes (Other)
  Sender: FDA-Public Use
  Company Number: US-JNJFOC-20140612870

PATIENT
  Sex: 0

DRUGS (2)
  1. INVOKANA [Suspect]
     Indication: PRODUCT USED FOR UNKNOWN INDICATION
  2. JANUMET [Concomitant]

REACTIONS (3)
  - Hypersensitivity [Recovered/Resolved]
  - Swelling face [Recovered/Resolved]
  - Lip swelling [Recovered/Resolved]
